FAERS Safety Report 5653873-9 (Version None)
Quarter: 2008Q1

REPORT INFORMATION
  Report Type: 
  Country: None (occurrence: None)
  Receive Date: 20080306
  Receipt Date: 20080226
  Transmission Date: 20080703
  Serious: Yes (Other)
  Sender: FDA-Public Use
  Company Number: US-PFIZER INC-2008018181

PATIENT
  Sex: Male
  Weight: 11.6 kg

DRUGS (3)
  1. REVATIO [Suspect]
     Indication: PULMONARY HYPERTENSION
  2. LASIX [Concomitant]
  3. OXYGEN [Concomitant]

REACTIONS (2)
  - GASTROENTERITIS VIRAL [None]
  - IDIOPATHIC THROMBOCYTOPENIC PURPURA [None]
